FAERS Safety Report 23484672 (Version 1)
Quarter: 2024Q1

REPORT INFORMATION
  Report Type: Report from Study
  Country: US (occurrence: US)
  Receive Date: 20240206
  Receipt Date: 20240206
  Transmission Date: 20240410
  Serious: Yes (Other)
  Sender: FDA-Public Use
  Company Number: US-JAZZ PHARMACEUTICALS-2023-US-011307

PATIENT
  Age: 49 Year
  Sex: Male

DRUGS (13)
  1. SODIUM OXYBATE [Suspect]
     Active Substance: SODIUM OXYBATE
     Indication: Narcolepsy
     Dosage: 6 ML AT BEDTIME AND 2.5 TO 4 HOURS LAYER DILUTED WITH 2 OUNCES OF WATER
     Route: 048
     Dates: start: 20230320
  2. SODIUM OXYBATE [Suspect]
     Active Substance: SODIUM OXYBATE
     Indication: Cataplexy
     Dosage: UNK
  3. SODIUM OXYBATE [Suspect]
     Active Substance: SODIUM OXYBATE
     Indication: Somnolence
  4. NUVIGIL [Concomitant]
     Active Substance: ARMODAFINIL
     Dosage: UNK
     Dates: start: 20100201
  5. MAXALT [Concomitant]
     Active Substance: RIZATRIPTAN BENZOATE
     Dosage: UNK
     Dates: start: 20040201
  6. XARELTO [Concomitant]
     Active Substance: RIVAROXABAN
     Dosage: UNK
     Dates: start: 20160901
  7. VITAMINS [Concomitant]
     Active Substance: VITAMINS
     Dosage: UNK
     Dates: start: 20200310
  8. ADVIL MIGRAINE [Concomitant]
     Active Substance: IBUPROFEN
  9. OMEPRAZOLE [Concomitant]
     Active Substance: OMEPRAZOLE
  10. FISH OIL [Concomitant]
     Active Substance: FISH OIL
  11. PROPRANOLOL HYDROCHLORIDE [Concomitant]
     Active Substance: PROPRANOLOL HYDROCHLORIDE
  12. ADVIL LIQUI-GELS [Concomitant]
     Active Substance: IBUPROFEN
     Dosage: UNK
     Dates: start: 20230928
  13. ARMODAFINIL [Concomitant]
     Active Substance: ARMODAFINIL
     Indication: Product used for unknown indication
     Dosage: UNK
     Dates: start: 20230928

REACTIONS (5)
  - Shoulder operation [Unknown]
  - Migraine [Unknown]
  - Snoring [Unknown]
  - Overweight [Unknown]
  - Depression [Unknown]

NARRATIVE: CASE EVENT DATE: 20230701
